FAERS Safety Report 7288623-6 (Version None)
Quarter: 2011Q1

REPORT INFORMATION
  Report Type: 
  Country: None (occurrence: None)
  Receive Date: 20110211
  Receipt Date: 20110208
  Transmission Date: 20110831
  Serious: Yes (Other)
  Sender: FDA-Public Use
  Company Number: PR-BRISTOL-MYERS SQUIBB COMPANY-15536246

PATIENT
  Sex: Female

DRUGS (5)
  1. BENICAR [Concomitant]
     Dosage: 1 DFL 40/25 HZT
  2. CARDIZEM [Concomitant]
  3. ONGLYZA [Suspect]
     Indication: HYPERGLYCAEMIA
  4. JANUMET [Concomitant]
  5. PLAVIX [Concomitant]

REACTIONS (2)
  - VISION BLURRED [None]
  - BLOOD GLUCOSE INCREASED [None]
